FAERS Safety Report 20406084 (Version 1)
Quarter: 2022Q1

REPORT INFORMATION
  Report Type: Spontaneous
  Country: US (occurrence: US)
  Receive Date: 20220131
  Receipt Date: 20220131
  Transmission Date: 20220423
  Serious: No
  Sender: FDA-Public Use
  Company Number: US-BAUSCH-BL-2022-001995

PATIENT
  Age: 63 Year
  Sex: Female
  Weight: 62.652 kg

DRUGS (1)
  1. JUBLIA [Suspect]
     Active Substance: EFINACONAZOLE
     Indication: Onychomycosis
     Route: 061
     Dates: start: 202106, end: 20220119

REACTIONS (3)
  - Application site dryness [Unknown]
  - Application site erosion [Unknown]
  - Application site vesicles [Not Recovered/Not Resolved]
